FAERS Safety Report 17852157 (Version 1)
Quarter: 2020Q2

REPORT INFORMATION
  Report Type: Spontaneous
  Country: DE (occurrence: DE)
  Receive Date: 20200602
  Receipt Date: 20200602
  Transmission Date: 20200714
  Serious: Yes (Other)
  Sender: FDA-Public Use
  Company Number: DE-NAPPMUNDI-GBR-2020-0075696

PATIENT
  Sex: Male

DRUGS (1)
  1. OXYGESIC [Suspect]
     Active Substance: OXYCODONE
     Indication: PAIN
     Dosage: 20 MILLIGRAMS AND 30 MILLIGRAMS THRICE DAILY WITH THE ADMINISTRATION SCHEDULE 20/30/20
     Route: 065

REACTIONS (5)
  - Inappropriate schedule of product administration [Unknown]
  - Hallucination, visual [Unknown]
  - Prostate cancer [Unknown]
  - Suicidal ideation [Unknown]
  - Drug dependence [Unknown]
